FAERS Safety Report 9875853 (Version 2)
Quarter: 2014Q1

REPORT INFORMATION
  Report Type: Other
  Country: US (occurrence: US)
  Receive Date: 20140206
  Receipt Date: 20140206
  Transmission Date: 20141002
  Serious: No
  Sender: FDA-Public Use
  Company Number: US-ACORDA-ACO_35839_2013

PATIENT
  Age: 69 Year
  Sex: Female

DRUGS (7)
  1. AMPYRA [Suspect]
     Indication: PRODUCT USED FOR UNKNOWN INDICATION
     Dosage: UNK, BID,UNK
     Dates: start: 20121217
  2. AMPYRA [Suspect]
     Dosage: UNK
  3. SIMVASTATIN [Concomitant]
     Indication: HIGH DENSITY LIPOPROTEIN
     Dosage: 20 UNK, QD
     Route: 048
  4. ATENOLOL [Concomitant]
     Indication: BLOOD PRESSURE
     Dosage: 100 UNK, QD
     Route: 048
  5. COPAXONE [Concomitant]
     Indication: MULTIPLE SCLEROSIS
     Dosage: 20 MG, UNK
     Route: 058
  6. OXYCODONE [Concomitant]
     Indication: PAIN
     Route: 048
  7. MIRALAX [Concomitant]
     Indication: CONSTIPATION
     Route: 048

REACTIONS (2)
  - Gait disturbance [Not Recovered/Not Resolved]
  - Fatigue [Not Recovered/Not Resolved]
